FAERS Safety Report 4295248-3 (Version None)
Quarter: 2004Q1

REPORT INFORMATION
  Report Type: 
  Country: None (occurrence: None)
  Receive Date: 20040216
  Receipt Date: 20030428
  Transmission Date: 20041129
  Serious: No
  Sender: FDA-Public Use
  Company Number: US-GLAXOSMITHKLINE-A0406418A

PATIENT
  Age: 65 Year
  Sex: Female
  Weight: 86.4 kg

DRUGS (2)
  1. LAMICTAL [Suspect]
     Dosage: 100MG UNKNOWN
     Route: 048
     Dates: start: 20030305, end: 20030501
  2. NORVASC [Concomitant]

REACTIONS (4)
  - NEUROPATHY PERIPHERAL [None]
  - PARAESTHESIA [None]
  - RESTLESS LEGS SYNDROME [None]
  - WEIGHT INCREASED [None]
